FAERS Safety Report 7153150-3 (Version None)
Quarter: 2010Q4

REPORT INFORMATION
  Report Type: 
  Country: None (occurrence: None)
  Receive Date: 20101213
  Receipt Date: 20101207
  Transmission Date: 20110411
  Serious: Yes (Other)
  Sender: FDA-Public Use
  Company Number: CA-PFIZER INC-2010138227

PATIENT
  Age: 41 Year
  Sex: Female
  Weight: 49.9 kg

DRUGS (2)
  1. DEPO-PROVERA [Suspect]
     Indication: CONTRACEPTION
     Dosage: 1 INJECTION, EVERY 3 MONTHS
     Dates: start: 20000101, end: 20091201
  2. ELTROXIN [Concomitant]
     Indication: THYROID DISORDER
     Dosage: 0.015, 1X/DAY
     Dates: start: 19840101

REACTIONS (2)
  - HORMONE LEVEL ABNORMAL [None]
  - VAGINAL HAEMORRHAGE [None]
